FAERS Safety Report 23059519 (Version 1)
Quarter: 2023Q4

REPORT INFORMATION
  Report Type: Spontaneous
  Country: US (occurrence: None)
  Receive Date: 20231012
  Receipt Date: 20231012
  Transmission Date: 20240109
  Serious: No
  Sender: FDA-Public Use
  Company Number: None

PATIENT
  Sex: 0

DRUGS (1)
  1. KLONOPIN [Suspect]
     Active Substance: CLONAZEPAM

REACTIONS (3)
  - Drug ineffective [None]
  - Tardive dyskinesia [None]
  - Off label use [None]
